FAERS Safety Report 5648915-0 (Version None)
Quarter: 2008Q1

REPORT INFORMATION
  Report Type: 
  Country: None (occurrence: None)
  Receive Date: 20080304
  Receipt Date: 20080214
  Transmission Date: 20080703
  Serious: Yes (Death)
  Sender: FDA-Public Use
  Company Number: CN-MERCK-0802CHN00032

PATIENT
  Age: 66 Year
  Sex: Male

DRUGS (3)
  1. PRIMAXIN [Suspect]
     Indication: BACTERIAL INFECTION
     Route: 065
     Dates: start: 20060101
  2. CEFTAZIDIME [Concomitant]
     Indication: BACTERIAL INFECTION
     Route: 065
     Dates: start: 20060101
  3. VANCOMYCIN [Concomitant]
     Indication: BACTERIAL INFECTION
     Route: 065
     Dates: start: 20060101

REACTIONS (3)
  - DRUG INEFFECTIVE [None]
  - GRAFT INFECTION [None]
  - HAEMORRHAGE [None]
